FAERS Safety Report 19494322 (Version 1)
Quarter: 2021Q3

REPORT INFORMATION
  Report Type: Report from Study
  Country: US (occurrence: US)
  Receive Date: 20210705
  Receipt Date: 20210705
  Transmission Date: 20211014
  Serious: No
  Sender: FDA-Public Use
  Company Number: US-INCYTE CORPORATION-2021IN004711

PATIENT

DRUGS (2)
  1. JAKAFI [Suspect]
     Active Substance: RUXOLITINIB
     Indication: POLYCYTHAEMIA VERA
     Dosage: 5 MILLIGRAM, BID
     Route: 048
     Dates: start: 20200225
  2. JAKAFI [Suspect]
     Active Substance: RUXOLITINIB
     Dosage: 5MG QAM, 10MG IN AFTERNOON
     Route: 048

REACTIONS (1)
  - Asthenia [Unknown]
